FAERS Safety Report 24720922 (Version 1)
Quarter: 2024Q4

REPORT INFORMATION
  Report Type: Report from Study
  Country: MX (occurrence: MX)
  Receive Date: 20241211
  Receipt Date: 20241211
  Transmission Date: 20250114
  Serious: Yes (Other)
  Sender: NOVARTIS
  Company Number: MX-002147023-NVSC2024MX234574

PATIENT
  Sex: Female

DRUGS (1)
  1. COSENTYX [Suspect]
     Active Substance: SECUKINUMAB
     Indication: Product used for unknown indication
     Dosage: 150 MG
     Route: 058

REACTIONS (1)
  - Tuberculosis [Unknown]
